FAERS Safety Report 20551531 (Version 1)
Quarter: 2022Q1

REPORT INFORMATION
  Report Type: Spontaneous
  Country: US (occurrence: US)
  Receive Date: 20220304
  Receipt Date: 20220304
  Transmission Date: 20220423
  Serious: Yes (Death, Other)
  Sender: FDA-Public Use
  Company Number: US-SA-SAC20220302001390

PATIENT
  Age: 87 Year
  Sex: Female

DRUGS (1)
  1. ZANTAC [Suspect]
     Active Substance: RANITIDINE HYDROCHLORIDE
     Indication: Abdominal discomfort
     Dosage: UNK UNK, QD
     Route: 065
     Dates: start: 200701, end: 201801

REACTIONS (2)
  - Colorectal cancer stage IV [Fatal]
  - Disease progression [Fatal]

NARRATIVE: CASE EVENT DATE: 20200131
